FAERS Safety Report 26082554 (Version 1)
Quarter: 2025Q4

REPORT INFORMATION
  Report Type: Spontaneous
  Country: US (occurrence: US)
  Receive Date: 20251124
  Receipt Date: 20251124
  Transmission Date: 20260118
  Serious: No
  Sender: INSMED
  Company Number: US-INSMED, INC.-2025-01462-US

PATIENT
  Sex: Female

DRUGS (5)
  1. ARIKAYCE [Suspect]
     Active Substance: AMIKACIN
     Indication: Mycobacterium avium complex infection
     Dosage: UNK, UNK
     Route: 055
  2. AZITHROMYCIN [Suspect]
     Active Substance: AZITHROMYCIN
     Indication: Mycobacterium avium complex infection
     Dosage: UNK, UNK
     Route: 065
  3. ETHAMBUTOL [Suspect]
     Active Substance: ETHAMBUTOL HYDROCHLORIDE
     Indication: Mycobacterium avium complex infection
     Dosage: UNK, UNK
     Route: 065
  4. RIFAMPIN [Suspect]
     Active Substance: RIFAMPIN
     Indication: Product used for unknown indication
     Dosage: UNK, UNK
     Route: 065
  5. RIFABUTIN [Suspect]
     Active Substance: RIFABUTIN
     Indication: Product used for unknown indication
     Dosage: UNK, UNK
     Route: 065

REACTIONS (2)
  - Urticaria [Unknown]
  - Drug ineffective [Unknown]
